FAERS Safety Report 8555741-1 (Version None)
Quarter: 2012Q3

REPORT INFORMATION
  Report Type: 
  Country: None (occurrence: None)
  Receive Date: 20120801
  Receipt Date: 20120727
  Transmission Date: 20120928
  Serious: No
  Sender: FDA-Public Use
  Company Number: US-009507513-1207USA011550

PATIENT

DRUGS (2)
  1. REBETOL [Suspect]
     Dosage: 600 MG, BID
     Route: 048
  2. PEG-INTRON [Suspect]
     Indication: HEPATITIS C
     Dosage: 150MCG, QW
     Route: 058
     Dates: start: 20120119

REACTIONS (1)
  - DRUG INEFFECTIVE [None]
